FAERS Safety Report 6249867-5 (Version None)
Quarter: 2009Q2

REPORT INFORMATION
  Report Type: 
  Country: None (occurrence: None)
  Receive Date: 20090629
  Receipt Date: 20090617
  Transmission Date: 20091009
  Serious: Yes (Other)
  Sender: FDA-Public Use
  Company Number: US-PFIZER INC-2009202451

PATIENT
  Sex: Female

DRUGS (7)
  1. LYRICA [Suspect]
     Indication: FIBROMYALGIA
     Dosage: UNK
  2. LYRICA [Suspect]
     Dosage: UNK
  3. ELAVIL [Concomitant]
  4. THYROID [Concomitant]
  5. SUDAFED 12 HOUR [Concomitant]
     Indication: HYPERSENSITIVITY
  6. ALLEGRA [Concomitant]
     Indication: HYPERSENSITIVITY
  7. GUAIFENESIN [Concomitant]
     Indication: HYPERSENSITIVITY

REACTIONS (4)
  - EYELID OEDEMA [None]
  - JOINT SWELLING [None]
  - OEDEMA PERIPHERAL [None]
  - SWELLING FACE [None]
